FAERS Safety Report 5319748-X (Version None)
Quarter: 2007Q2

REPORT INFORMATION
  Report Type: 
  Country: None (occurrence: None)
  Receive Date: 20070502
  Receipt Date: 20070416
  Transmission Date: 20071010
  Serious: Yes (Death, Life-Threatening, Other)
  Sender: FDA-Public Use
  Company Number: 2007JP001393

PATIENT
  Age: 58 Year
  Sex: Male
  Weight: 72.5 kg

DRUGS (7)
  1. PROGRAF [Suspect]
     Indication: STEM CELL TRANSPLANT
     Dosage: CONTINUOUS, IV DRIP
     Route: 041
     Dates: start: 20041111, end: 20041225
  2. ACYCLOVIR [Concomitant]
  3. TEICOPLANIN INJECTION [Concomitant]
  4. MILLISROL (GLYCERYL TRINITRATE) INJECTION [Concomitant]
  5. NOVOLIN R (INSULIN HUMAN) INJECTION [Concomitant]
  6. FLUDARA [Concomitant]
  7. ALKERAN [Concomitant]

REACTIONS (7)
  - ACUTE GRAFT VERSUS HOST DISEASE IN LIVER [None]
  - BRONCHOPULMONARY ASPERGILLOSIS [None]
  - DEPRESSED LEVEL OF CONSCIOUSNESS [None]
  - HEPATIC FAILURE [None]
  - HUMAN HERPESVIRUS 6 INFECTION [None]
  - LIVER DISORDER [None]
  - ORAL CANDIDIASIS [None]
